FAERS Safety Report 7290019-8 (Version None)
Quarter: 2011Q1

REPORT INFORMATION
  Report Type: 
  Country: None (occurrence: None)
  Receive Date: 20110214
  Receipt Date: 20110207
  Transmission Date: 20110831
  Serious: Yes (Other)
  Sender: FDA-Public Use
  Company Number: US-AMGEN-USASP2011007097

PATIENT
  Age: 63 Year
  Sex: Female
  Weight: 77.098 kg

DRUGS (2)
  1. ENBREL [Suspect]
     Indication: PSORIASIS
     Dosage: UNK
  2. HUMIRA [Suspect]
     Indication: PSORIASIS
     Dosage: UNK UNK, Q2WK
     Route: 058
     Dates: start: 20100901

REACTIONS (3)
  - FURUNCLE [None]
  - DRUG INEFFECTIVE [None]
  - BACK DISORDER [None]
